FAERS Safety Report 22125917 (Version 2)
Quarter: 2023Q2

REPORT INFORMATION
  Report Type: Spontaneous
  Country: TW (occurrence: TW)
  Receive Date: 20230322
  Receipt Date: 20230417
  Transmission Date: 20230721
  Serious: Yes (Death, Hospitalization, Other)
  Sender: FDA-Public Use
  Company Number: TW-SA-2023SA090139

PATIENT

DRUGS (1)
  1. CAPRELSA [Suspect]
     Active Substance: VANDETANIB
     Dosage: UNK

REACTIONS (2)
  - Pneumonia [Fatal]
  - Acute respiratory failure [Fatal]
